FAERS Safety Report 13773227 (Version 1)
Quarter: 2017Q3

REPORT INFORMATION
  Report Type: Spontaneous
  Country: SK (occurrence: SK)
  Receive Date: 20170720
  Receipt Date: 20170720
  Transmission Date: 20171127
  Serious: Yes (Death, Hospitalization, Other)
  Sender: FDA-Public Use
  Company Number: SK-PFIZER INC-2017314669

PATIENT
  Age: 78 Year
  Sex: Male

DRUGS (9)
  1. CORDARONE [Suspect]
     Active Substance: AMIODARONE HYDROCHLORIDE
     Indication: ATRIAL FIBRILLATION
     Dosage: 200 MG, 1X/DAY
     Route: 048
  2. CARDILAN [Concomitant]
     Dosage: UNK
  3. HELICID [Concomitant]
     Dosage: UNK
  4. AMLESSA [Concomitant]
     Dosage: UNK
  5. ELIQUIS [Concomitant]
     Active Substance: APIXABAN
     Dosage: UNK
  6. CONCOR COR [Concomitant]
     Active Substance: BISOPROLOL FUMARATE
     Dosage: UNK
  7. ENELBIN RETARD [Concomitant]
     Dosage: UNK
  8. SORTIS [Concomitant]
     Active Substance: ATORVASTATIN
     Dosage: UNK
  9. RAWEL [Concomitant]
     Dosage: UNK

REACTIONS (3)
  - Myocardial ischaemia [Fatal]
  - Cardiac failure [Fatal]
  - Hyperthyroidism [Not Recovered/Not Resolved]

NARRATIVE: CASE EVENT DATE: 20170526
